FAERS Safety Report 7582876-2 (Version None)
Quarter: 2011Q2

REPORT INFORMATION
  Report Type: 
  Country: None (occurrence: None)
  Receive Date: 20110630
  Receipt Date: 20110628
  Transmission Date: 20111010
  Serious: Yes (Life-Threatening, Other)
  Sender: FDA-Public Use
  Company Number: GB-PFIZER INC-2011106789

PATIENT
  Age: 53 Year
  Sex: Female
  Weight: 82 kg

DRUGS (5)
  1. LOFEPRAMINE [Concomitant]
     Indication: DEPRESSED MOOD
     Dosage: 75 MG, 3X/DAY
     Route: 048
  2. VARENICLINE TARTRATE [Suspect]
     Indication: SMOKING CESSATION THERAPY
     Dosage: UNK
     Route: 048
     Dates: start: 20110419, end: 20110504
  3. LEVOTHYROXINE [Concomitant]
     Indication: HYPOTHYROIDISM
     Dosage: 125 UG, 1X/DAY
     Route: 048
  4. DISULFIRAM [Concomitant]
     Indication: ALCOHOL ABUSE
     Dosage: 200 MG, 1X/DAY
     Route: 048
  5. OMEPRAZOLE [Concomitant]
     Indication: DYSPEPSIA
     Dosage: 20 MG, 1X/DAY
     Route: 048

REACTIONS (7)
  - FEELING ABNORMAL [None]
  - DEPRESSED MOOD [None]
  - MOOD ALTERED [None]
  - SUICIDAL IDEATION [None]
  - IRRITABILITY [None]
  - DECREASED INTEREST [None]
  - AGGRESSION [None]
